FAERS Safety Report 5972936-1 (Version None)
Quarter: 2008Q4

REPORT INFORMATION
  Report Type: 
  Country: None (occurrence: None)
  Receive Date: 20081201
  Receipt Date: 20081120
  Transmission Date: 20090506
  Serious: Yes (Death, Life-Threatening, Hospitalization, Other)
  Sender: FDA-Public Use
  Company Number: PHHY2008US27564

PATIENT
  Sex: Male
  Weight: 76 kg

DRUGS (3)
  1. GLEEVEC [Suspect]
     Indication: CHRONIC MYELOID LEUKAEMIA
     Dosage: 400 MG, QD
     Route: 048
     Dates: start: 20080310, end: 20081001
  2. NILOTINIB [Suspect]
     Indication: BLAST CRISIS IN MYELOGENOUS LEUKAEMIA
     Dosage: 400 MG, BID
     Route: 048
     Dates: start: 20081103
  3. DASATINIB [Concomitant]

REACTIONS (19)
  - ANURIA [None]
  - BLAST CRISIS IN MYELOGENOUS LEUKAEMIA [None]
  - BLOOD CREATININE INCREASED [None]
  - CARDIAC ARREST [None]
  - ENDOTRACHEAL INTUBATION [None]
  - FAECAL INCONTINENCE [None]
  - GENITAL PAIN [None]
  - HAEMORRHAGE INTRACRANIAL [None]
  - HEADACHE [None]
  - HYPOTENSION [None]
  - LOBAR PNEUMONIA [None]
  - MUSCULAR WEAKNESS [None]
  - PNEUMONIA [None]
  - PROCTALGIA [None]
  - PYREXIA [None]
  - RECTAL PERFORATION [None]
  - RENAL CORTICAL NECROSIS [None]
  - RESPIRATORY FAILURE [None]
  - SUBDURAL HAEMATOMA [None]
